FAERS Safety Report 9880666 (Version 7)
Quarter: 2014Q2

REPORT INFORMATION
  Report Type: Spontaneous
  Country: IT (occurrence: None)
  Receive Date: 20140205
  Receipt Date: 20140414
  Transmission Date: 20141212
  Serious: Yes (Hospitalization)
  Sender: FDA-Public Use
  Company Number: AUR-APL-2014-01202

PATIENT
  Age: 61 Year
  Sex: Male

DRUGS (8)
  1. METFORMIN [Suspect]
     Indication: DIABETES MELLITUS
     Dosage: 2000 MG, 1 D
     Route: 048
     Dates: start: 20130101, end: 20131206
  2. GLICLAZIDE [Suspect]
     Indication: DIABETES MELLITUS
     Dosage: 100 MG, 1 D
     Route: 048
     Dates: start: 20130101, end: 20131206
  3. CARDIOASPIRIN (ACETYLSALICYLIC ACID) [Concomitant]
  4. PLAVIX (CLOPIDOGREL BISULFATE) [Concomitant]
  5. NITRODERM TTS (GLYCERYL TRINITRATE) [Concomitant]
  6. XIPOCOL (SIMVASTATIN) [Concomitant]
  7. RAMIPRIL (RAMIPRIL) [Concomitant]
  8. CARVEDILOL (CARVEDILOL) [Concomitant]

REACTIONS (3)
  - Aphasia [None]
  - Hypoglycaemia [None]
  - Slow response to stimuli [None]
